FAERS Safety Report 12623669 (Version 3)
Quarter: 2016Q4

REPORT INFORMATION
  Report Type: Spontaneous
  Country: US (occurrence: US)
  Receive Date: 20160804
  Receipt Date: 20161116
  Transmission Date: 20170207
  Serious: Yes (Hospitalization, Other)
  Sender: FDA-Public Use
  Company Number: US-PFIZER INC-2016370657

PATIENT
  Age: 74 Year
  Sex: Male
  Weight: 64 kg

DRUGS (20)
  1. DUREZOL [Suspect]
     Active Substance: DIFLUPREDNATE
     Dosage: 4 TIMES PER DAY
  2. DUREZOL [Suspect]
     Active Substance: DIFLUPREDNATE
     Dosage: 1 TIMES PER DAY
  3. DUREZOL [Suspect]
     Active Substance: DIFLUPREDNATE
     Dosage: LEFT EYE EVERY 2 HOURS
     Dates: start: 2016
  4. HYGROTON [Concomitant]
     Active Substance: CHLORTHALIDONE
     Indication: BLOOD PRESSURE ABNORMAL
     Dosage: 12 MG, AS NEEDED
     Dates: start: 2015
  5. LUMIGAN [Suspect]
     Active Substance: BIMATOPROST
     Dosage: 2 DROP IN AM AND 2 DROP PM IN EACH EYE
     Dates: start: 2008
  6. DUREZOL [Suspect]
     Active Substance: DIFLUPREDNATE
     Dosage: 5 TIMES PER A DAY
  7. DUREZOL [Suspect]
     Active Substance: DIFLUPREDNATE
     Dosage: TWO DROP PER DAY
  8. DUREZOL [Suspect]
     Active Substance: DIFLUPREDNATE
     Dosage: UNK
  9. LATANOPROST. [Suspect]
     Active Substance: LATANOPROST
     Dosage: 1 DROP EACH EYE AT BEDTIME
     Dates: start: 2015
  10. DORZOLAMIDE [Suspect]
     Active Substance: DORZOLAMIDE
     Dosage: 4 TIMES A DAY, TWO IN DAYTIME AND TWO IN NIGHT TIME
     Dates: start: 2008
  11. ATENOLOL. [Concomitant]
     Active Substance: ATENOLOL
     Indication: BLOOD PRESSURE ABNORMAL
     Dosage: 12 MG, AS NEEDED
     Dates: start: 1987
  12. FLOMAX [Concomitant]
     Active Substance: TAMSULOSIN HYDROCHLORIDE
     Indication: PROSTATIC DISORDER
     Dosage: 4 MG, 1X/DAY
     Dates: start: 2008
  13. COMBIGAN [Concomitant]
     Active Substance: BRIMONIDINE TARTRATE\TIMOLOL MALEATE
     Dosage: 2 GTT, UNK (IN EACH EYE, 2 %)
  14. DUREZOL [Suspect]
     Active Substance: DIFLUPREDNATE
     Dosage: 3 TIMES PER DAY
  15. DUREZOL [Suspect]
     Active Substance: DIFLUPREDNATE
     Dosage: 2 TIMES PER DAY
  16. DORZOLAMIDE [Suspect]
     Active Substance: DORZOLAMIDE
     Dosage: 3 TIMES A DAY IN LEFT EYE
     Dates: start: 2015
  17. OFLOXACIN. [Suspect]
     Active Substance: OFLOXACIN
     Dosage: 3%, LEFT EYE
     Route: 047
     Dates: start: 2015, end: 2016
  18. LISINOPRIL. [Concomitant]
     Active Substance: LISINOPRIL
     Indication: BLOOD PRESSURE ABNORMAL
     Dosage: 10 MG, 1X/DAY
     Dates: start: 2008
  19. FINASTERIDE. [Concomitant]
     Active Substance: FINASTERIDE
     Indication: PROSTATIC DISORDER
     Dosage: 5 MG, 1X/DAY
     Dates: start: 2010
  20. COMBIGAN [Concomitant]
     Active Substance: BRIMONIDINE TARTRATE\TIMOLOL MALEATE
     Dosage: UNK ( 0.2%, 0.5% )

REACTIONS (3)
  - Intraocular pressure increased [Not Recovered/Not Resolved]
  - Drug effect incomplete [Recovered/Resolved]
  - Visual acuity reduced [Not Recovered/Not Resolved]
